FAERS Safety Report 7387528-X (Version None)
Quarter: 2011Q1

REPORT INFORMATION
  Report Type: 
  Country: None (occurrence: None)
  Receive Date: 20110331
  Receipt Date: 20110318
  Transmission Date: 20110831
  Serious: Yes (Other)
  Sender: FDA-Public Use
  Company Number: ES-CELGENEUS-144-C5013-11030669

PATIENT
  Sex: Male
  Weight: 79.6 kg

DRUGS (17)
  1. CLEXANE [Concomitant]
     Indication: PROPHYLAXIS
     Dosage: 60 MILLIGRAM
     Route: 058
     Dates: start: 20110124, end: 20110207
  2. ATORVASTATIN CALCIUM [Concomitant]
     Indication: ANGINA PECTORIS
     Dosage: 40 MILLIGRAM
     Route: 048
     Dates: start: 20110114
  3. CALCIUM [Concomitant]
     Dosage: 500 MILLIGRAM
     Route: 048
     Dates: start: 20110114
  4. RED BLOOD CELLS [Concomitant]
     Route: 051
     Dates: start: 20100318, end: 20101216
  5. RAMIPRIL [Concomitant]
     Indication: ANGINA PECTORIS
     Dosage: 2.5 MILLIGRAM
     Route: 048
     Dates: start: 20110114
  6. ARANESP [Concomitant]
     Dosage: 150 MICROGRAM
     Route: 058
     Dates: start: 20110124
  7. LENALIDOMIDE [Suspect]
     Indication: MULTIPLE MYELOMA
     Dosage: 25 MILLIGRAM
     Route: 048
     Dates: start: 20100218
  8. LENALIDOMIDE [Suspect]
     Dosage: 25 MILLIGRAM
     Route: 048
     Dates: start: 20110124, end: 20110207
  9. DEXAMETHASONE [Suspect]
     Dosage: 20 MILLIGRAM
     Route: 065
     Dates: start: 20110124, end: 20110207
  10. EMCONCOR [Concomitant]
     Indication: ANGINA PECTORIS
     Dosage: 2.5 MILLIGRAM
     Route: 048
     Dates: start: 20110111
  11. ALLOPURINOL [Concomitant]
     Dosage: 300 MILLIGRAM
     Route: 048
     Dates: start: 20110114
  12. COLCHIMAX [Concomitant]
     Indication: PAIN PROPHYLAXIS
     Dosage: .5 MILLIGRAM
     Route: 048
     Dates: start: 20110114
  13. RED BLOOD CELLS [Concomitant]
     Route: 051
     Dates: start: 20110207, end: 20110224
  14. DEXAMETHASONE [Suspect]
     Indication: MULTIPLE MYELOMA
     Dosage: 20 MILLIGRAM
     Route: 065
     Dates: start: 20100218
  15. DEXAMETHASONE [Suspect]
     Dosage: 10 MILLIGRAM
     Route: 051
     Dates: start: 20110228
  16. POTASSIUM [Concomitant]
     Dosage: 30 MILLILITER
     Route: 048
     Dates: start: 20110207
  17. RANITIDINE [Concomitant]
     Indication: PROPHYLAXIS
     Dosage: 300 MILLIGRAM
     Route: 048
     Dates: start: 20110114

REACTIONS (1)
  - BIOPSY BONE MARROW ABNORMAL [None]
